FAERS Safety Report 6791377-0 (Version None)
Quarter: 2010Q2

REPORT INFORMATION
  Report Type: 
  Country: None (occurrence: None)
  Receive Date: 20100624
  Receipt Date: 20100615
  Transmission Date: 20101027
  Serious: Yes (Hospitalization)
  Sender: FDA-Public Use
  Company Number: BE-ABBOTT-09P-013-0573166-00

PATIENT
  Sex: Male
  Weight: 60 kg

DRUGS (18)
  1. HUMIRA [Suspect]
     Indication: RHEUMATOID ARTHRITIS
     Route: 058
     Dates: start: 20040824
  2. IMURAN [Concomitant]
     Indication: RHEUMATOID ARTHRITIS
     Dates: start: 19950315
  3. IMURAN [Concomitant]
     Route: 048
  4. PREDNISOLONE [Concomitant]
     Indication: RHEUMATOID ARTHRITIS
     Route: 048
     Dates: start: 19980701, end: 20030814
  5. PREDNISOLONE [Concomitant]
     Route: 048
     Dates: start: 20040324
  6. PREDNISOLONE [Concomitant]
     Route: 048
  7. ELTHYRONE [Concomitant]
     Indication: HYPOTHYROIDISM
     Dates: start: 19980701
  8. DURAGESIC-100 [Concomitant]
     Indication: RHEUMATOID ARTHRITIS
  9. MS DIRECT [Concomitant]
     Indication: RHEUMATOID ARTHRITIS
  10. TEGRETOL [Concomitant]
     Indication: DEPRESSION
  11. NULYTELY [Concomitant]
     Indication: CONSTIPATION
  12. VALTRAN [Concomitant]
     Indication: RHEUMATOID ARTHRITIS
     Route: 048
  13. VALTRAN [Concomitant]
     Indication: PAIN
  14. SALAZOPYRINE [Concomitant]
     Indication: RHEUMATOID ARTHRITIS
     Route: 048
     Dates: start: 19930629, end: 19940701
  15. METHOTREXATE [Concomitant]
     Indication: RHEUMATOID ARTHRITIS
     Route: 030
     Dates: start: 19950701, end: 19950701
  16. CACIT D3 [Concomitant]
     Indication: MINERAL SUPPLEMENTATION
     Dosage: 500/440
     Route: 048
     Dates: start: 20030814
  17. PREDNI [Concomitant]
     Indication: RHEUMATOID ARTHRITIS
     Route: 048
     Dates: start: 20030814, end: 20031008
  18. PREDNI [Concomitant]
     Route: 048
     Dates: start: 20031009, end: 20040324

REACTIONS (1)
  - COLON CANCER [None]
